FAERS Safety Report 7738658-1 (Version None)
Quarter: 2011Q3

REPORT INFORMATION
  Report Type: 
  Country: None (occurrence: None)
  Receive Date: 20110908
  Receipt Date: 20110905
  Transmission Date: 20111222
  Serious: Yes (Other)
  Sender: FDA-Public Use
  Company Number: JP-MERCK-1104USA02951

PATIENT

DRUGS (3)
  1. PHENYTOIN SODIUM CAP [Suspect]
     Route: 048
  2. PHENOBARBITAL TAB [Suspect]
     Route: 048
  3. JANUVIA [Suspect]
     Route: 048

REACTIONS (2)
  - EPILEPSY [None]
  - DRUG INTERACTION [None]
